FAERS Safety Report 18648977 (Version 1)
Quarter: 2020Q4

REPORT INFORMATION
  Report Type: Spontaneous
  Country: FR (occurrence: FR)
  Receive Date: 20201222
  Receipt Date: 20201222
  Transmission Date: 20210114
  Serious: Yes (Other)
  Sender: FDA-Public Use
  Company Number: FR-MYLANLABS-2020M1103363

PATIENT
  Age: 44 Year
  Sex: Female
  Weight: 64 kg

DRUGS (12)
  1. ABASAGLAR [Concomitant]
     Active Substance: INSULIN GLARGINE
     Dosage: 8 INTERNATIONAL UNIT, QD
     Route: 058
  2. PHOSPHONEUROS [Concomitant]
     Active Substance: CALCIUM PHOSPHATE, DIBASIC, ANHYDROUS\MAGNESIUM GLYCEROPHOSPHATE\PHOSPHORIC ACID\SODIUM PHOSPHATE, DIBASIC
     Dosage: 150 GTT DROPS, QD
     Route: 048
  3. LEDERFOLINE [Concomitant]
     Active Substance: LEUCOVORIN CALCIUM
     Dosage: 1 DOSAGE FORM, QD
     Route: 048
  4. TIORFAN [Concomitant]
     Active Substance: RACECADOTRIL
     Dosage: 3 DOSAGE FORM, QD
     Route: 048
  5. KALEORID LP [Concomitant]
     Active Substance: POTASSIUM CHLORIDE
     Dosage: 4 DOSAGE FORM, QD
     Route: 048
  6. BACTRIM [Suspect]
     Active Substance: SULFAMETHOXAZOLE\TRIMETHOPRIM
     Indication: PNEUMOCYSTIS JIROVECII PNEUMONIA
     Dosage: 6 DOSAGE FORM, QD
     Route: 048
     Dates: start: 20201031, end: 20201110
  7. HUMALOG [Concomitant]
     Active Substance: INSULIN LISPRO
     Dosage: 12 INTERNATIONAL UNIT, QD
     Route: 058
  8. LOVENOX [Concomitant]
     Active Substance: ENOXAPARIN SODIUM
     Dosage: 4 INTERNATIONAL UNIT, QD
     Route: 058
  9. DARUNAVIR MYLAN [Suspect]
     Active Substance: DARUNAVIR
     Indication: HIV INFECTION
     Dosage: 1 DOSAGE FORM, QD
     Route: 048
     Dates: start: 20201102
  10. RITONAVIR MYLAN [Suspect]
     Active Substance: RITONAVIR
     Indication: HIV INFECTION
     Dosage: 1 DOSAGE FORM, QD
     Route: 048
     Dates: start: 20201102
  11. MYLAN-EMTRICITABINE/TENOFOVIR DISOPROXIL [Suspect]
     Active Substance: EMTRICITABINE\TENOFOVIR DISOPROXIL
     Indication: HIV INFECTION
     Dosage: 1 DOSAGE FORM, QD
     Route: 048
     Dates: start: 20201102
  12. POTASSIUM CHLORIDE. [Concomitant]
     Active Substance: POTASSIUM CHLORIDE
     Dosage: 3 DOSAGE FORM, QD

REACTIONS (3)
  - Thrombocytopenia [Recovered/Resolved]
  - Hyponatraemia [Not Recovered/Not Resolved]
  - Epistaxis [Recovered/Resolved]

NARRATIVE: CASE EVENT DATE: 202011
